FAERS Safety Report 10883452 (Version 3)
Quarter: 2015Q2

REPORT INFORMATION
  Report Type: Report from Study
  Country: US (occurrence: US)
  Receive Date: 20150303
  Receipt Date: 20150610
  Transmission Date: 20150821
  Serious: No
  Sender: FDA-Public Use
  Company Number: US-VERTEX PHARMACEUTICALS-2015-000549

PATIENT
  Age: 10 Year
  Sex: Male
  Weight: 35 kg

DRUGS (8)
  1. CEFDINIR. [Concomitant]
     Active Substance: CEFDINIR
     Indication: SINUSITIS
     Dosage: UNK
     Route: 065
     Dates: start: 20150130
  2. PULMOZYME [Concomitant]
     Active Substance: DORNASE ALFA
     Dosage: UNK, QD
     Dates: start: 201001
  3. SINGULAIR [Concomitant]
     Active Substance: MONTELUKAST SODIUM
     Dosage: UNK
     Dates: start: 201001
  4. PREDNISOLONE. [Concomitant]
     Active Substance: PREDNISOLONE
     Indication: SINUSITIS
     Dosage: UNK
     Route: 065
     Dates: start: 20150126
  5. ALBUTEROL. [Concomitant]
     Active Substance: ALBUTEROL
     Dosage: UNK, BID
     Dates: start: 201001
  6. HYPERTONIC SALINE [Concomitant]
     Dosage: UNK, QD
     Dates: start: 201001
  7. NASONEX [Concomitant]
     Active Substance: MOMETASONE FUROATE
     Dosage: UNK, QD
     Dates: start: 201001
  8. KALYDECO [Suspect]
     Active Substance: IVACAFTOR
     Indication: CYSTIC FIBROSIS
     Dosage: 150 MG, BID
     Route: 048
     Dates: start: 20150212

REACTIONS (2)
  - Sinusitis [Not Recovered/Not Resolved]
  - Nasopharyngitis [Recovered/Resolved]

NARRATIVE: CASE EVENT DATE: 201502
